FAERS Safety Report 6308249-8 (Version None)
Quarter: 2009Q3

REPORT INFORMATION
  Report Type: 
  Country: None (occurrence: None)
  Receive Date: 20090813
  Receipt Date: 20090807
  Transmission Date: 20100115
  Serious: Yes (Death)
  Sender: FDA-Public Use
  Company Number: JP-ASTRAZENECA-2009SE07463

PATIENT
  Age: 85 Year
  Sex: Male

DRUGS (1)
  1. ECARD [Suspect]
     Indication: HYPERTENSION
     Route: 048

REACTIONS (1)
  - MYOCARDIAL INFARCTION [None]
